FAERS Safety Report 9266693 (Version 1)
Quarter: 2013Q2

REPORT INFORMATION
  Report Type: Spontaneous
  Country: IT (occurrence: IT)
  Receive Date: 20130502
  Receipt Date: 20130502
  Transmission Date: 20140414
  Serious: Yes (Hospitalization)
  Sender: FDA-Public Use
  Company Number: IT-PFIZER INC-2013133889

PATIENT
  Age: 68 Year
  Sex: Male
  Weight: 82 kg

DRUGS (2)
  1. CARBOPLATIN [Suspect]
     Indication: BENIGN PLEURAL MESOTHELIOMA
     Dosage: 300 MG, CYCLIC
     Route: 042
     Dates: start: 20121116, end: 20130125
  2. ALIMTA [Suspect]
     Indication: BENIGN PLEURAL MESOTHELIOMA
     Dosage: 800 MG, CYCLIC
     Route: 042
     Dates: start: 20121116, end: 20130125

REACTIONS (7)
  - Dry skin [Not Recovered/Not Resolved]
  - Hypothermia [Not Recovered/Not Resolved]
  - Hypotonia [Not Recovered/Not Resolved]
  - Movement disorder [Not Recovered/Not Resolved]
  - Polyneuropathy [Not Recovered/Not Resolved]
  - Ileus paralytic [Not Recovered/Not Resolved]
  - Muscle atrophy [Not Recovered/Not Resolved]
